FAERS Safety Report 11316563 (Version 1)
Quarter: 2015Q3

REPORT INFORMATION
  Report Type: Report from Study
  Country: AU (occurrence: AU)
  Receive Date: 20150728
  Receipt Date: 20150728
  Transmission Date: 20151125
  Serious: Yes (Other)
  Sender: FDA-Public Use
  Company Number: AU-GSKJP-AU2015GSK107548AA

PATIENT
  Age: 56 Year
  Sex: Male

DRUGS (1)
  1. DABRAFENIB [Suspect]
     Active Substance: DABRAFENIB
     Indication: METASTATIC MALIGNANT MELANOMA
     Dosage: 150 MG, BID

REACTIONS (3)
  - Erythema [Recovering/Resolving]
  - Panniculitis [Recovering/Resolving]
  - Erythema nodosum [Recovering/Resolving]
